FAERS Safety Report 25973824 (Version 1)
Quarter: 2025Q4

REPORT INFORMATION
  Report Type: Spontaneous
  Country: JP (occurrence: JP)
  Receive Date: 20251029
  Receipt Date: 20251029
  Transmission Date: 20260118
  Serious: Yes (Other)
  Sender: AMGEN
  Company Number: JP-AMGEN-JPNSP2025212011

PATIENT

DRUGS (2)
  1. FILGRASTIM [Suspect]
     Active Substance: FILGRASTIM
     Indication: Autologous haematopoietic stem cell transplant
     Dosage: UNK
     Route: 065
  2. LENOGRASTIM [Suspect]
     Active Substance: LENOGRASTIM
     Indication: Haematopoietic stem cell mobilisation
     Dosage: UNK
     Route: 065

REACTIONS (23)
  - Neutropenia [Recovered/Resolved]
  - Leukopenia [Recovered/Resolved]
  - Retroperitoneal haematoma [Recovering/Resolving]
  - Muscle haemorrhage [Recovered/Resolved]
  - Gaze palsy [Recovered/Resolved]
  - Thrombocytopenia [Recovered/Resolved]
  - Oxygen saturation decreased [Recovered/Resolved]
  - Asthma [Recovered/Resolved]
  - Hepatic function abnormal [Recovered/Resolved]
  - Haematuria [Recovering/Resolving]
  - Gout [Recovering/Resolving]
  - Citrate toxicity [Recovered/Resolved]
  - Oropharyngeal discomfort [Recovered/Resolved]
  - Blood pressure decreased [Recovered/Resolved]
  - C-reactive protein increased [Recovered/Resolved]
  - Tetany [Recovered/Resolved]
  - Hypersensitivity [Recovered/Resolved]
  - Pyrexia [Recovered/Resolved]
  - Vomiting [Recovered/Resolved]
  - Dyspnoea [Recovered/Resolved]
  - Cough [Recovered/Resolved]
  - Pain in extremity [Recovering/Resolving]
  - Anaemia [Recovering/Resolving]
